FAERS Safety Report 16369725 (Version 2)
Quarter: 2020Q2

REPORT INFORMATION
  Report Type: Spontaneous
  Country: US (occurrence: US)
  Receive Date: 20190530
  Receipt Date: 20200601
  Transmission Date: 20200713
  Serious: Yes (Other)
  Sender: FDA-Public Use
  Company Number: US-SUN PHARMACEUTICAL INDUSTRIES LTD-2019R1-209219

PATIENT
  Sex: Female

DRUGS (2)
  1. CEFTRIAXONE. [Suspect]
     Active Substance: CEFTRIAXONE
     Indication: URINARY TRACT INFECTION
     Dosage: UNK
     Route: 065
  2. DOXYCYCLINE. [Suspect]
     Active Substance: DOXYCYCLINE
     Indication: URINARY TRACT INFECTION
     Dosage: UNK
     Route: 065

REACTIONS (2)
  - Jarisch-Herxheimer reaction [Unknown]
  - Babesiosis [Unknown]
